FAERS Safety Report 24950961 (Version 3)
Quarter: 2025Q3

REPORT INFORMATION
  Report Type: Spontaneous
  Country: RU (occurrence: RU)
  Receive Date: 20250210
  Receipt Date: 20250803
  Transmission Date: 20251020
  Serious: Yes (Hospitalization, Other)
  Sender: ALEXION PHARMACEUTICALS
  Company Number: RU-ASTRAZENECA-202502RUS000944RU

PATIENT
  Age: 31 Year
  Sex: Female
  Weight: 70 kg

DRUGS (3)
  1. SEROQUEL [Suspect]
     Active Substance: QUETIAPINE FUMARATE
     Indication: Toxicity to various agents
     Dates: start: 20241227, end: 20241227
  2. VALPROIC ACID [Suspect]
     Active Substance: VALPROIC ACID
     Indication: Toxicity to various agents
     Dates: start: 20241227, end: 20241227
  3. ETORICOXIB [Suspect]
     Active Substance: ETORICOXIB
     Indication: Toxicity to various agents
     Dates: start: 20241227, end: 20241227

REACTIONS (6)
  - Asthenia [Unknown]
  - Dizziness [Unknown]
  - Malaise [Unknown]
  - Bipolar disorder [Unknown]
  - Breath odour [Unknown]
  - Toxic encephalopathy [Recovering/Resolving]

NARRATIVE: CASE EVENT DATE: 20241227
